FAERS Safety Report 10685868 (Version 1)
Quarter: 2014Q4

REPORT INFORMATION
  Report Type: Spontaneous
  Country: FR (occurrence: FR)
  Receive Date: 20141231
  Receipt Date: 20141231
  Transmission Date: 20150529
  Serious: Yes (Hospitalization, Other)
  Sender: FDA-Public Use
  Company Number: FR-PFIZER INC-2014359903

PATIENT
  Age: 76 Year
  Sex: Female

DRUGS (11)
  1. LYRICA [Suspect]
     Active Substance: PREGABALIN
     Dosage: 75 MG, 2X/DAY
     Route: 048
     Dates: start: 20141008, end: 20141013
  2. ZAMUDOL LP [Suspect]
     Active Substance: TRAMADOL HYDROCHLORIDE
     Indication: BACK PAIN
     Dosage: 50 MG, 1X/DAY
     Route: 048
     Dates: start: 20141007, end: 20141008
  3. LEVOTHYROX [Concomitant]
     Active Substance: LEVOTHYROXINE
  4. INSULIN [Concomitant]
     Active Substance: INSULIN NOS
  5. INEXIUM /01479302/ [Concomitant]
     Active Substance: ESOMEPRAZOLE MAGNESIUM
  6. RAMIPRIL. [Concomitant]
     Active Substance: RAMIPRIL
  7. ZAMUDOL LP [Suspect]
     Active Substance: TRAMADOL HYDROCHLORIDE
     Indication: SPINAL PAIN
     Dosage: 50 MG, 2X/DAY
     Route: 048
     Dates: start: 20141009, end: 20141013
  8. BISOCE [Concomitant]
     Active Substance: BISOPROLOL
  9. TOPALGIC [Concomitant]
     Active Substance: TRAMADOL
     Dosage: 50 MG, 3X/DAY
  10. KARDEGIC [Concomitant]
     Active Substance: ASPIRIN LYSINE
  11. LASILIX [Concomitant]
     Active Substance: FUROSEMIDE

REACTIONS (5)
  - Hallucinations, mixed [Recovered/Resolved]
  - Persecutory delusion [Recovered/Resolved]
  - Radius fracture [Recovered/Resolved with Sequelae]
  - Confusional state [Recovering/Resolving]
  - Fall [Unknown]

NARRATIVE: CASE EVENT DATE: 201410
